FAERS Safety Report 4727463-6 (Version None)
Quarter: 2005Q3

REPORT INFORMATION
  Report Type: 
  Country: None (occurrence: None)
  Receive Date: 20050725
  Receipt Date: 20050725
  Transmission Date: 20060218
  Serious: Yes (Disabling)
  Sender: FDA-Public Use
  Company Number: None

PATIENT
  Sex: Female

DRUGS (1)
  1. NOREPINEPHRINE [Suspect]
     Indication: RESUSCITATION
     Dosage: 0.3 TO 1    MCG/KG/MIN   INTRAVENOU
     Route: 042
     Dates: start: 20050505, end: 20050510

REACTIONS (1)
  - NECROSIS [None]
